FAERS Safety Report 14156895 (Version 6)
Quarter: 2018Q3

REPORT INFORMATION
  Report Type: Report from Study
  Country: US (occurrence: US)
  Receive Date: 20171103
  Receipt Date: 20180917
  Transmission Date: 20181010
  Serious: Yes (Hospitalization)
  Sender: FDA-Public Use
  Company Number: US-SUN PHARMACEUTICAL INDUSTRIES LTD-2017US-153943

PATIENT
  Age: 81 Year
  Sex: Female
  Weight: 66.3 kg

DRUGS (4)
  1. SONIDEGIB [Suspect]
     Active Substance: SONIDEGIB
     Dosage: UNK
     Route: 048
     Dates: start: 20171106
  2. SONIDEGIB [Suspect]
     Active Substance: SONIDEGIB
     Indication: NEOPLASM
     Dosage: UNK
     Route: 048
     Dates: start: 20171002, end: 20171004
  3. AZACITIDINE COMP?AZAC+ [Suspect]
     Active Substance: AZACITIDINE
     Dosage: 75 MG/M2, BID
     Route: 058
     Dates: start: 20171021
  4. AZACITIDINE COMP?AZAC+ [Suspect]
     Active Substance: AZACITIDINE
     Indication: NEOPLASM
     Dosage: 75 MG/M2, BID
     Route: 058
     Dates: start: 20150831, end: 20171003

REACTIONS (2)
  - Fall [Recovered/Resolved]
  - Hip fracture [Recovered/Resolved]

NARRATIVE: CASE EVENT DATE: 20171003
